FAERS Safety Report 4478446-5 (Version None)
Quarter: 2004Q4

REPORT INFORMATION
  Report Type: 
  Country: None (occurrence: None)
  Receive Date: 20041018
  Receipt Date: 20041018
  Transmission Date: 20050328
  Serious: Yes (Hospitalization)
  Sender: FDA-Public Use
  Company Number: None

PATIENT
  Age: 71 Year
  Sex: Male
  Weight: 95.8 kg

DRUGS (11)
  1. ANGIOMAX [Suspect]
     Indication: CATHETERISATION CARDIAC
     Dosage: 2.5 MG PER KG  HOUR  INTRAVENOUS
     Route: 042
     Dates: start: 20040730, end: 20040730
  2. LEPIRUDIN [Concomitant]
  3. GATIFLOXACIN [Concomitant]
  4. DEXTROSE 5% AND SODIUM CHLORIDE 0.45% [Concomitant]
  5. ASPIRIN [Concomitant]
  6. PLAVIX [Concomitant]
  7. LEVOTHYROXIN [Concomitant]
  8. METOPROLOL [Concomitant]
  9. SIMVASTATIN [Concomitant]
  10. SPIRONOLACTONE [Concomitant]
  11. COUMADIN [Concomitant]

REACTIONS (2)
  - FLUSHING [None]
  - HYPOTENSION [None]
